FAERS Safety Report 6174083-5 (Version None)
Quarter: 2009Q2

REPORT INFORMATION
  Report Type: 
  Country: None (occurrence: None)
  Receive Date: 20090430
  Receipt Date: 20080313
  Transmission Date: 20091009
  Serious: No
  Sender: FDA-Public Use
  Company Number: US-ASTRAZENECA-2008UW05141

PATIENT
  Age: 82 Year
  Sex: Female

DRUGS (6)
  1. NEXIUM [Suspect]
     Indication: GASTROOESOPHAGEAL REFLUX DISEASE
     Route: 048
     Dates: start: 20080312
  2. REGLAN [Concomitant]
  3. SYNTHROID [Concomitant]
  4. LISINOPRIL [Concomitant]
  5. REMERON [Concomitant]
  6. KLONOPIN [Concomitant]

REACTIONS (2)
  - ACCIDENTAL OVERDOSE [None]
  - GASTROINTESTINAL PAIN [None]
